FAERS Safety Report 7708472-1 (Version None)
Quarter: 2011Q3

REPORT INFORMATION
  Report Type: 
  Country: None (occurrence: None)
  Receive Date: 20110819
  Receipt Date: 20110811
  Transmission Date: 20111222
  Serious: Yes (Other)
  Sender: FDA-Public Use
  Company Number: 121145

PATIENT
  Age: 36 Year
  Sex: Male

DRUGS (1)
  1. CERUBIDINE [Suspect]
     Indication: ACUTE MYELOID LEUKAEMIA
     Dosage: 114.6MG 1 X DAY IV
     Route: 042
     Dates: start: 20080124, end: 20080126

REACTIONS (2)
  - APLASIA [None]
  - CYTOLYTIC HEPATITIS [None]
